FAERS Safety Report 6965088-2 (Version None)
Quarter: 2010Q3

REPORT INFORMATION
  Report Type: 
  Country: None (occurrence: None)
  Receive Date: 20100903
  Receipt Date: 20100827
  Transmission Date: 20110219
  Serious: Yes (Hospitalization)
  Sender: FDA-Public Use
  Company Number: JP-BAYER-200910407BYL

PATIENT
  Age: 62 Year
  Sex: Female
  Weight: 48 kg

DRUGS (13)
  1. NEXAVAR [Suspect]
     Indication: RENAL CELL CARCINOMA
     Dosage: UNIT DOSE: 200 MG
     Route: 048
     Dates: start: 20080813, end: 20080819
  2. NEXAVAR [Suspect]
     Dosage: UNIT DOSE: 200 MG
     Route: 048
     Dates: start: 20080819, end: 20080911
  3. NEXAVAR [Suspect]
     Dosage: TOTAL DAILY DOSE: 400 MG  UNIT DOSE: 200 MG
     Route: 048
     Dates: start: 20081007, end: 20081020
  4. NEXAVAR [Suspect]
     Dosage: UNIT DOSE: 200 MG
     Route: 048
     Dates: start: 20081021, end: 20081029
  5. NEXAVAR [Suspect]
     Dosage: TOTAL DAILY DOSE: 400 MG  UNIT DOSE: 200 MG
     Route: 048
     Dates: start: 20081030, end: 20081106
  6. NEXAVAR [Suspect]
     Dosage: UNIT DOSE: 200 MG
     Route: 048
     Dates: start: 20081107, end: 20081120
  7. NEXAVAR [Suspect]
     Dosage: TOTAL DAILY DOSE: 400 MG  UNIT DOSE: 200 MG
     Route: 048
     Dates: start: 20081121, end: 20090104
  8. NEXAVAR [Suspect]
     Dosage: UNIT DOSE: 200 MG
     Route: 048
     Dates: start: 20090105, end: 20090206
  9. TAKEPRON [Concomitant]
     Route: 048
     Dates: start: 20080817, end: 20081006
  10. TAKEPRON [Concomitant]
     Route: 048
     Dates: start: 20081007, end: 20090216
  11. LOXONIN [Concomitant]
     Route: 048
     Dates: start: 20080817, end: 20080901
  12. CALTAN NOS [Concomitant]
     Route: 048
     Dates: start: 20080813, end: 20090206
  13. NIPOLAZIN [Concomitant]
     Route: 048
     Dates: start: 20081027, end: 20090206

REACTIONS (7)
  - HYPERTENSION [None]
  - LIP OEDEMA [None]
  - MALAISE [None]
  - PALMAR-PLANTAR ERYTHRODYSAESTHESIA SYNDROME [None]
  - RASH [None]
  - SKIN ULCER [None]
  - URTICARIA [None]
